FAERS Safety Report 17760812 (Version 1)
Quarter: 2020Q2

REPORT INFORMATION
  Report Type: Spontaneous
  Country: US (occurrence: US)
  Receive Date: 20200508
  Receipt Date: 20200508
  Transmission Date: 20200714
  Serious: Yes (Other)
  Sender: FDA-Public Use
  Company Number: None

PATIENT
  Sex: Male
  Weight: 103.5 kg

DRUGS (2)
  1. JAKAFI [Concomitant]
     Active Substance: RUXOLITINIB
  2. JAKAFI [Suspect]
     Active Substance: RUXOLITINIB
     Route: 048

REACTIONS (1)
  - Weight increased [None]
